FAERS Safety Report 6206179-3 (Version None)
Quarter: 2009Q2

REPORT INFORMATION
  Report Type: 
  Country: None (occurrence: None)
  Receive Date: 20090526
  Receipt Date: 20090513
  Transmission Date: 20091009
  Serious: Yes (Life-Threatening)
  Sender: FDA-Public Use
  Company Number: IMP_04393_2009

PATIENT
  Sex: Female

DRUGS (4)
  1. CLARITIN-D [Suspect]
     Indication: EYE PRURITUS
     Dosage: DF
     Dates: start: 20090505, end: 20090508
  2. CLARITIN-D [Suspect]
     Indication: LACRIMATION INCREASED
     Dosage: DF
     Dates: start: 20090505, end: 20090508
  3. CLARITIN-D [Suspect]
     Indication: MULTIPLE ALLERGIES
     Dosage: DF
     Dates: start: 20090505, end: 20090508
  4. CLARITIN-D [Suspect]
     Indication: POSTNASAL DRIP
     Dosage: DF
     Dates: start: 20090505, end: 20090508

REACTIONS (5)
  - COUGH [None]
  - DYSPHONIA [None]
  - REACTION TO DRUG EXCIPIENTS [None]
  - SHOCK [None]
  - SWOLLEN TONGUE [None]
